FAERS Safety Report 9879467 (Version 1)
Quarter: 2014Q1

REPORT INFORMATION
  Report Type: Spontaneous
  Country: CH (occurrence: CH)
  Receive Date: 20140206
  Receipt Date: 20140206
  Transmission Date: 20141002
  Serious: Yes (Hospitalization)
  Sender: FDA-Public Use
  Company Number: CH-ELI_LILLY_AND_COMPANY-CH201402001643

PATIENT
  Age: 67 Year
  Sex: Male
  Weight: 81 kg

DRUGS (18)
  1. EFIENT [Suspect]
     Indication: STENT PLACEMENT
     Dosage: 60 MG, UNKNOWN
     Route: 048
     Dates: start: 20131207, end: 20131207
  2. EFIENT [Interacting]
     Dosage: 10 MG, QD
     Route: 048
     Dates: start: 20131208
  3. REOPRO [Interacting]
     Indication: STENT PLACEMENT
     Dosage: 20 MG, UNKNOWN
     Route: 042
     Dates: start: 20131207, end: 20131207
  4. ASPEGIC [Interacting]
     Indication: STENT PLACEMENT
     Dosage: 500 MG, UNKNOWN
     Route: 042
     Dates: start: 20131207, end: 20131207
  5. FRAGMIN [Interacting]
     Indication: STENT PLACEMENT
     Dosage: 5000 IU, UNK
     Route: 042
     Dates: start: 20131207, end: 20131207
  6. MORPHIN HCL BICHSEL [Concomitant]
     Dosage: 4 MG, UNKNOWN
     Route: 042
     Dates: start: 20131207, end: 20131207
  7. AUGMENTIN [Concomitant]
     Dosage: 1.2 G, TID
     Route: 042
     Dates: start: 20131209, end: 20131214
  8. KLACID                             /00984601/ [Concomitant]
     Dosage: 500 MG, BID
     Route: 048
     Dates: start: 20131209, end: 20131212
  9. ASPIRIN CARDIO [Concomitant]
     Dosage: 100 MG, QD
     Route: 048
  10. ATORVA [Concomitant]
     Dosage: 40 MG, QD
     Route: 048
  11. NEBILET [Concomitant]
     Dosage: 2.5 MG, QD
     Route: 048
     Dates: end: 201312
  12. COVERSUM [Concomitant]
     Dosage: 5 MG, QD
     Route: 048
     Dates: end: 201312
  13. KCL [Concomitant]
     Dosage: 20 MMOL, QID
     Route: 048
     Dates: end: 201312
  14. TOREM                              /01036501/ [Concomitant]
     Dosage: 10 MG, QD
     Route: 048
  15. PHOSPHATE                          /01318702/ [Concomitant]
     Dosage: 30 MMOL, TID
     Route: 048
  16. MAGNESIUM [Concomitant]
     Dosage: 12 MMOL, QD
     Route: 048
     Dates: end: 201312
  17. DOSPIR [Concomitant]
     Dosage: 0.5/2.5MG 6/DAY
  18. ARIXTRA [Concomitant]
     Dosage: 5000 IU, QD
     Route: 058
     Dates: end: 201312

REACTIONS (12)
  - Oxygen saturation decreased [Recovered/Resolved]
  - Reperfusion arrhythmia [Unknown]
  - Lung infiltration [Unknown]
  - Inflammatory marker increased [Unknown]
  - Atypical pneumonia [Unknown]
  - Respiratory failure [Unknown]
  - Pulmonary oedema [Unknown]
  - Emphysema [Unknown]
  - Influenza [Unknown]
  - Pulmonary alveolar haemorrhage [Unknown]
  - Haemoptysis [Recovering/Resolving]
  - Drug interaction [Unknown]
